FAERS Safety Report 13370186 (Version 2)
Quarter: 2017Q2

REPORT INFORMATION
  Report Type: Other
  Country: FR (occurrence: FR)
  Receive Date: 20170324
  Receipt Date: 20170518
  Transmission Date: 20170830
  Serious: Yes (Other)
  Sender: FDA-Public Use
  Company Number: FR-HIKMA PHARMACEUTICALS CO. LTD-2017FR003305

PATIENT

DRUGS (2)
  1. REMSIMA [Suspect]
     Active Substance: INFLIXIMAB
     Indication: ANKYLOSING SPONDYLITIS
     Dosage: UNK, 1 CYCLE
     Route: 042
     Dates: start: 20161107, end: 20161107
  2. REMSIMA [Suspect]
     Active Substance: INFLIXIMAB
     Dosage: UNK, 1 CYCLE
     Route: 042
     Dates: start: 20170102, end: 20170102

REACTIONS (5)
  - Psoriasis [Unknown]
  - Influenza like illness [Not Recovered/Not Resolved]
  - Spinal pain [Not Recovered/Not Resolved]
  - Antibody test positive [Unknown]
  - Drug ineffective [Unknown]

NARRATIVE: CASE EVENT DATE: 201611
